FAERS Safety Report 6535906-0 (Version None)
Quarter: 2010Q1

REPORT INFORMATION
  Report Type: 
  Country: None (occurrence: None)
  Receive Date: 20100113
  Receipt Date: 20100106
  Transmission Date: 20100710
  Serious: Yes (Hospitalization, Disabling)
  Sender: FDA-Public Use
  Company Number: US-PERRIGO-10US006078

PATIENT
  Age: 76 Year
  Sex: Female

DRUGS (1)
  1. SODIUM PHOSPHATE GINGER-LEMON SALINE LAXITIVE 660 MG/ML 556 [Suspect]
     Indication: COLONOSCOPY
     Dosage: UNK
     Route: 048
     Dates: start: 20071025, end: 20071026

REACTIONS (2)
  - DRUG TOXICITY [None]
  - RENAL FAILURE [None]
